FAERS Safety Report 6321839-1 (Version None)
Quarter: 2009Q3

REPORT INFORMATION
  Report Type: 
  Country: None (occurrence: None)
  Receive Date: 20090821
  Receipt Date: 20090821
  Transmission Date: 20100115
  Serious: Yes (Hospitalization)
  Sender: FDA-Public Use
  Company Number: None

PATIENT
  Age: 11 Year
  Sex: Male
  Weight: 24.9478 kg

DRUGS (1)
  1. AXID [Suspect]
     Indication: GASTROOESOPHAGEAL REFLUX DISEASE
     Dosage: 90MG OR 6ML BID
     Dates: start: 20080124, end: 20090813

REACTIONS (1)
  - NEPHROLITHIASIS [None]
